FAERS Safety Report 10141853 (Version 1)
Quarter: 2014Q2

REPORT INFORMATION
  Report Type: Spontaneous
  Country: US (occurrence: US)
  Receive Date: 20140429
  Receipt Date: 20140429
  Transmission Date: 20141212
  Serious: No
  Sender: FDA-Public Use
  Company Number: US-ABBVIE-13P-163-1076343-00

PATIENT
  Age: 55 Year
  Sex: Female

DRUGS (1)
  1. CREON [Suspect]
     Indication: PRODUCT USED FOR UNKNOWN INDICATION
     Dosage: 24,000

REACTIONS (2)
  - Back pain [Unknown]
  - Unevaluable event [Unknown]
